FAERS Safety Report 16397044 (Version 6)
Quarter: 2021Q2

REPORT INFORMATION
  Report Type: Spontaneous
  Country: DE (occurrence: DE)
  Receive Date: 20190606
  Receipt Date: 20210518
  Transmission Date: 20210716
  Serious: Yes (Life-Threatening, Hospitalization, Other)
  Sender: FDA-Public Use
  Company Number: DE-AUROBINDO-AUR-APL-2019-031398

PATIENT
  Age: 28 Year
  Sex: Female

DRUGS (15)
  1. TRANEXAMIC [Suspect]
     Active Substance: TRANEXAMIC ACID
     Indication: INTRAPARTUM HAEMORRHAGE
  2. FIBRINOGEN [Concomitant]
     Active Substance: FIBRINOGEN HUMAN
     Indication: UTERINE HAEMORRHAGE
  3. SULPROSTONE [Concomitant]
     Active Substance: SULPROSTONE
     Indication: HAEMOSTASIS
     Dosage: UNK
     Route: 065
  4. FIBRINOGEN [Concomitant]
     Active Substance: FIBRINOGEN HUMAN
     Indication: INTRAPARTUM HAEMORRHAGE
     Dosage: 4 GRAM
     Route: 065
  5. MAGNESIUM [Concomitant]
     Active Substance: MAGNESIUM
     Indication: HYPERTENSION
     Dosage: UNK
     Route: 042
  6. TRANEXAMIC [Suspect]
     Active Substance: TRANEXAMIC ACID
     Indication: PERIPARTUM HAEMORRHAGE
     Dosage: 2 GRAM
     Route: 065
  7. PROTHROMBIN [Concomitant]
     Active Substance: PROTHROMBIN
     Indication: UTERINE HAEMORRHAGE
  8. AMLODIPINE [Concomitant]
     Active Substance: AMLODIPINE BESYLATE
     Indication: HYPERTENSION
     Dosage: UNK
     Route: 048
  9. OXYTOCIN. [Concomitant]
     Active Substance: OXYTOCIN
     Indication: HAEMOSTASIS
     Dosage: UNK
     Route: 065
  10. TRANEXAMIC [Suspect]
     Active Substance: TRANEXAMIC ACID
     Indication: UTERINE HAEMORRHAGE
  11. PROTHROMBIN [Concomitant]
     Active Substance: PROTHROMBIN
     Indication: INTRAPARTUM HAEMORRHAGE
     Dosage: 4000 INTERNATIONAL UNIT
     Route: 065
  12. PROTHROMBIN [Concomitant]
     Active Substance: PROTHROMBIN
     Indication: HAEMOSTASIS
  13. FIBRINOGEN [Concomitant]
     Active Substance: FIBRINOGEN HUMAN
     Indication: HAEMOSTASIS
  14. TRANEXAMIC [Suspect]
     Active Substance: TRANEXAMIC ACID
     Indication: HAEMOSTASIS
  15. PLASMA [Concomitant]
     Active Substance: HUMAN PLASMA
     Indication: PRODUCT USED FOR UNKNOWN INDICATION
     Dosage: UNK
     Route: 065

REACTIONS (8)
  - Thrombotic microangiopathy [Recovered/Resolved]
  - Renal tubular injury [Unknown]
  - Renal failure [Recovered/Resolved]
  - Renal ischaemia [Recovered/Resolved]
  - Anuria [Unknown]
  - Renal impairment [Unknown]
  - Pleural effusion [Unknown]
  - Renal cortical necrosis [Recovered/Resolved]
